FAERS Safety Report 14426426 (Version 1)
Quarter: 2018Q1

REPORT INFORMATION
  Report Type: Spontaneous
  Country: US (occurrence: US)
  Receive Date: 20180123
  Receipt Date: 20180123
  Transmission Date: 20180509
  Serious: No
  Sender: FDA-Public Use
  Company Number: US-ROCHE-2034629

PATIENT
  Sex: Male

DRUGS (19)
  1. OCREVUS [Suspect]
     Active Substance: OCRELIZUMAB
     Indication: PRODUCT USED FOR UNKNOWN INDICATION
     Route: 065
     Dates: start: 20171114
  2. IPRATROPII BROMIDUM [Concomitant]
     Dosage: AS NEEDED
     Route: 065
  3. TRAMADOL. [Concomitant]
     Active Substance: TRAMADOL
     Dosage: NEEDED
     Route: 065
  4. CARBAMAZEPINE. [Concomitant]
     Active Substance: CARBAMAZEPINE
     Route: 065
  5. METFORMIN [Concomitant]
     Active Substance: METFORMIN HYDROCHLORIDE
     Route: 065
  6. PANTOPRAZOLE [Concomitant]
     Active Substance: PANTOPRAZOLE
     Dosage: QAM
     Route: 065
  7. SOLU-MEDROL [Concomitant]
     Active Substance: METHYLPREDNISOLONE SODIUM SUCCINATE
  8. ARICEPT [Concomitant]
     Active Substance: DONEPEZIL HYDROCHLORIDE
     Dosage: QAM
     Route: 065
  9. GABAPENTIN. [Concomitant]
     Active Substance: GABAPENTIN
     Dosage: QID
     Route: 065
  10. DIAZEPAM. [Concomitant]
     Active Substance: DIAZEPAM
     Dosage: AT Q NIGHT
     Route: 065
  11. AMPYRA [Concomitant]
     Active Substance: DALFAMPRIDINE
     Route: 065
  12. NITROFURANTIN [Concomitant]
     Active Substance: NITROFURANTOIN
     Dosage: EVENING
     Route: 065
  13. BACLOFEN. [Concomitant]
     Active Substance: BACLOFEN
     Route: 065
  14. MYRBETRIQ [Concomitant]
     Active Substance: MIRABEGRON
     Dosage: EVENING
     Route: 065
  15. DULOXETINE. [Concomitant]
     Active Substance: DULOXETINE
     Route: 065
  16. SIMVASTATIN. [Concomitant]
     Active Substance: SIMVASTATIN
     Route: 065
  17. OCREVUS [Suspect]
     Active Substance: OCRELIZUMAB
     Route: 065
     Dates: start: 20171128
  18. SUCRALFATE. [Concomitant]
     Active Substance: SUCRALFATE
     Indication: GASTROOESOPHAGEAL REFLUX DISEASE
     Dosage: NEEDED FOR GERD
     Route: 065
  19. TESTOSTERONE. [Concomitant]
     Active Substance: TESTOSTERONE
     Route: 030

REACTIONS (2)
  - Musculoskeletal stiffness [Unknown]
  - Muscle spasticity [Unknown]
